FAERS Safety Report 18916564 (Version 2)
Quarter: 2021Q1

REPORT INFORMATION
  Report Type: Spontaneous
  Country: US (occurrence: US)
  Receive Date: 20210219
  Receipt Date: 20210308
  Transmission Date: 20210420
  Serious: Yes (Hospitalization, Other)
  Sender: FDA-Public Use
  Company Number: US-KYOWAKIRIN-2021BKK002385

PATIENT

DRUGS (1)
  1. CRYSVITA [Suspect]
     Active Substance: BUROSUMAB-TWZA
     Indication: PRODUCT USED FOR UNKNOWN INDICATION
     Dosage: INITIAL STANDARD RECOMMENDED DOSE
     Route: 065

REACTIONS (7)
  - Eyelid ptosis [Recovering/Resolving]
  - Hypoaesthesia [Recovering/Resolving]
  - Myasthenia gravis [Recovering/Resolving]
  - Facial paresis [Recovering/Resolving]
  - Hypoaesthesia oral [Recovering/Resolving]
  - Fatigue [Recovering/Resolving]
  - Tongue movement disturbance [Recovering/Resolving]
